FAERS Safety Report 5700737-8 (Version None)
Quarter: 2008Q2

REPORT INFORMATION
  Report Type: 
  Country: None (occurrence: None)
  Receive Date: 20080410
  Receipt Date: 20080212
  Transmission Date: 20081010
  Serious: No
  Sender: FDA-Public Use
  Company Number: A0709082A

PATIENT
  Age: 60 Year
  Sex: Female

DRUGS (3)
  1. TYKERB [Suspect]
     Indication: BREAST CANCER
     Dosage: 5TAB PER DAY
     Route: 048
     Dates: start: 20071125
  2. XELODA [Suspect]
     Indication: BREAST CANCER
     Dosage: 3TAB TWICE PER DAY
     Route: 048
     Dates: start: 20071125
  3. DIOVAN [Concomitant]

REACTIONS (5)
  - DIARRHOEA [None]
  - NAIL INFECTION [None]
  - NAUSEA [None]
  - ONYCHOMADESIS [None]
  - VOMITING [None]
